FAERS Safety Report 7067730-7 (Version None)
Quarter: 2010Q4

REPORT INFORMATION
  Report Type: 
  Country: None (occurrence: None)
  Receive Date: 20101028
  Receipt Date: 20101019
  Transmission Date: 20110411
  Serious: Yes (Hospitalization)
  Sender: FDA-Public Use
  Company Number: FR-NOVOPROD-313508

PATIENT
  Age: 61 Year
  Sex: Male

DRUGS (9)
  1. NOVOMIX 30 FLEXPEN [Suspect]
     Indication: DIABETES MELLITUS
     Dosage: UNK
     Dates: start: 20090901
  2. ETHAMBUTOL HYDROCHLORIDE [Suspect]
     Indication: DISSEMINATED TUBERCULOSIS
     Dosage: 3 PHARMACEUTICAL DOSES DAILY
     Route: 048
     Dates: start: 20090901, end: 20091028
  3. RIFATER [Suspect]
     Indication: DISSEMINATED TUBERCULOSIS
     Dosage: 6 PHARMACEUTICAL DOSES DAILY
     Route: 048
     Dates: start: 20090901, end: 20091028
  4. COLCHIMAX                          /01722001/ [Suspect]
     Indication: GOUT
     Dosage: UNK
     Route: 048
     Dates: start: 20090901, end: 20100401
  5. COLCHIMAX                          /01722001/ [Suspect]
     Indication: HYPERURICAEMIA
  6. ALLOPURINOL [Suspect]
     Indication: GOUT
     Dosage: UNK
     Dates: start: 20090901
  7. ALLOPURINOL [Suspect]
     Indication: HYPERURICAEMIA
  8. STAGID [Suspect]
     Indication: DIABETES MELLITUS
     Dosage: 1400 MG, QD
     Route: 048
  9. RIFINAH [Suspect]
     Indication: DISSEMINATED TUBERCULOSIS
     Dosage: UNK
     Dates: end: 20100525

REACTIONS (2)
  - GOODPASTURE'S SYNDROME [None]
  - RENAL FAILURE ACUTE [None]
